FAERS Safety Report 10136787 (Version 1)
Quarter: 2014Q2

REPORT INFORMATION
  Report Type: Spontaneous
  Country: US (occurrence: US)
  Receive Date: 20140429
  Receipt Date: 20140429
  Transmission Date: 20141212
  Serious: No
  Sender: FDA-Public Use
  Company Number: US-MYLANLABS-2014S1000309

PATIENT
  Age: 75 Year
  Sex: Male

DRUGS (4)
  1. DUONEB INHALATION SOLUTION [Suspect]
  2. TUDORZA PRESSAIR [Suspect]
     Indication: EMPHYSEMA
     Route: 048
     Dates: start: 20131205
  3. SYMBICORT [Concomitant]
  4. DULERA [Concomitant]

REACTIONS (2)
  - Drug ineffective [Not Recovered/Not Resolved]
  - Potentiating drug interaction [Not Recovered/Not Resolved]
